FAERS Safety Report 15916291 (Version 3)
Quarter: 2020Q1

REPORT INFORMATION
  Report Type: Spontaneous
  Country: US (occurrence: US)
  Receive Date: 20190204
  Receipt Date: 20200122
  Transmission Date: 20200409
  Serious: Yes (Other)
  Sender: FDA-Public Use
  Company Number: US-ASTRAZENECA-2019SE17856

PATIENT
  Age: 23367 Day
  Sex: Male
  Weight: 81.6 kg

DRUGS (61)
  1. PROTONIX [Suspect]
     Active Substance: PANTOPRAZOLE SODIUM
     Indication: GASTROOESOPHAGEAL REFLUX DISEASE
     Route: 065
     Dates: start: 2000, end: 2016
  2. PROTONIX [Suspect]
     Active Substance: PANTOPRAZOLE SODIUM
     Indication: GASTROOESOPHAGEAL REFLUX DISEASE
     Dosage: GENERIC (PANTOPRAZOLE 40 MG DAILY
     Route: 065
     Dates: start: 2016
  3. PROTONIX [Suspect]
     Active Substance: PANTOPRAZOLE SODIUM
     Indication: GASTROOESOPHAGEAL REFLUX DISEASE
     Route: 048
     Dates: start: 20160603
  4. CELEBREX [Concomitant]
     Active Substance: CELECOXIB
     Indication: ARTHRALGIA
  5. CIALIS [Concomitant]
     Active Substance: TADALAFIL
  6. TAMIFLU [Concomitant]
     Active Substance: OSELTAMIVIR PHOSPHATE
  7. BUPROPION HYDROCHLORIDE. [Concomitant]
     Active Substance: BUPROPION HYDROCHLORIDE
  8. HYOSCYAMINE. [Concomitant]
     Active Substance: HYOSCYAMINE
  9. FLONASE [Concomitant]
     Active Substance: FLUTICASONE PROPIONATE
     Dosage: 50 MCG
     Dates: start: 20160603
  10. ZOFRAN [Concomitant]
     Active Substance: ONDANSETRON HYDROCHLORIDE
  11. NEXIUM [Suspect]
     Active Substance: ESOMEPRAZOLE MAGNESIUM
     Indication: GASTROOESOPHAGEAL REFLUX DISEASE
     Route: 048
     Dates: start: 2000, end: 2016
  12. LANSOPRAZOLE. [Suspect]
     Active Substance: LANSOPRAZOLE
     Indication: GASTROOESOPHAGEAL REFLUX DISEASE
     Dosage: GENERIC
     Route: 048
  13. SYNTHROID [Concomitant]
     Active Substance: LEVOTHYROXINE SODIUM
     Dosage: LEVOTHYROXINE
     Dates: start: 20100224
  14. SULFAMETHOXAZOLE-TMP [Concomitant]
     Active Substance: SULFAMETHOXAZOLE\TRIMETHOPRIM
     Dates: start: 20091201
  15. NIASPAN [Concomitant]
     Active Substance: NIACIN
     Dates: start: 20100127
  16. LIPITOR [Concomitant]
     Active Substance: ATORVASTATIN CALCIUM
     Indication: BLOOD CHOLESTEROL INCREASED
  17. CIPROFLOXACIN. [Concomitant]
     Active Substance: CIPROFLOXACIN
  18. ZOCOR [Concomitant]
     Active Substance: SIMVASTATIN
     Indication: BLOOD CHOLESTEROL INCREASED
  19. CRESTOR [Concomitant]
     Active Substance: ROSUVASTATIN CALCIUM
     Indication: BLOOD CHOLESTEROL INCREASED
  20. MYSOLINE [Concomitant]
     Active Substance: PRIMIDONE
     Route: 048
     Dates: start: 20160603
  21. LORTAB [Concomitant]
     Active Substance: ACETAMINOPHEN\HYDROCODONE BITARTRATE
  22. OMEPRAZOLE. [Suspect]
     Active Substance: OMEPRAZOLE
     Indication: GASTROOESOPHAGEAL REFLUX DISEASE
     Dosage: GENERIC
     Route: 048
  23. PROTONIX [Suspect]
     Active Substance: PANTOPRAZOLE SODIUM
     Indication: GASTROOESOPHAGEAL REFLUX DISEASE
     Route: 048
     Dates: start: 20050331
  24. PROTONIX [Suspect]
     Active Substance: PANTOPRAZOLE SODIUM
     Indication: GASTROOESOPHAGEAL REFLUX DISEASE
     Dosage: GENERIC (PANTOPRAZOLE 40 MG DAILY
     Route: 065
     Dates: start: 2009
  25. LANSOPRAZOLE. [Suspect]
     Active Substance: LANSOPRAZOLE
     Indication: GASTROOESOPHAGEAL REFLUX DISEASE
     Dosage: GENERIC (LANSOPRAZOLE)
     Route: 065
     Dates: start: 2010, end: 2013
  26. AVANDAMET [Concomitant]
     Active Substance: METFORMIN HYDROCHLORIDE\ROSIGLITAZONE MALEATE
     Dates: start: 20050415
  27. TRICOR [Concomitant]
     Active Substance: FENOFIBRATE
  28. ATENOLOL. [Concomitant]
     Active Substance: ATENOLOL
  29. ZOLOFT [Concomitant]
     Active Substance: SERTRALINE HYDROCHLORIDE
     Route: 048
     Dates: start: 20160603
  30. DEMEROL [Concomitant]
     Active Substance: MEPERIDINE HYDROCHLORIDE
  31. SINGULAIR [Concomitant]
     Active Substance: MONTELUKAST SODIUM
  32. FORTAMET [Concomitant]
     Active Substance: METFORMIN HYDROCHLORIDE
  33. TESTOSTERONE CYPIONATE. [Concomitant]
     Active Substance: TESTOSTERONE CYPIONATE
     Dosage: 200 MG/ML
     Dates: start: 20160603
  34. OMEPRAZOLE. [Suspect]
     Active Substance: OMEPRAZOLE
     Indication: GASTROOESOPHAGEAL REFLUX DISEASE
     Dosage: GENERIC (OMEPRAZOLE) 40 MG DAILY
     Route: 065
     Dates: start: 2017
  35. ZOLPIDEM TARTRATE. [Concomitant]
     Active Substance: ZOLPIDEM TARTRATE
     Dates: start: 20091210
  36. CARISOPRODOL. [Concomitant]
     Active Substance: CARISOPRODOL
  37. NITROSTAT [Concomitant]
     Active Substance: NITROGLYCERIN
     Dosage: SUBLINGUAL TABLET
     Dates: start: 20160603
  38. EFFIENT [Concomitant]
     Active Substance: PRASUGREL HYDROCHLORIDE
     Route: 048
     Dates: start: 20160603
  39. CATAPRES [Concomitant]
     Active Substance: CLONIDINE HYDROCHLORIDE
  40. NORCO [Concomitant]
     Active Substance: ACETAMINOPHEN\HYDROCODONE BITARTRATE
  41. RANITIDINE. [Concomitant]
     Active Substance: RANITIDINE
  42. KLONOPIN [Concomitant]
     Active Substance: CLONAZEPAM
  43. MOBIC [Concomitant]
     Active Substance: MELOXICAM
     Indication: ARTHRALGIA
  44. AMOXICILLIN. [Concomitant]
     Active Substance: AMOXICILLIN
     Indication: INFECTION
  45. METFORMIN [Concomitant]
     Active Substance: METFORMIN HYDROCHLORIDE
  46. TESTOSTERONE. [Concomitant]
     Active Substance: TESTOSTERONE
  47. NEXIUM [Suspect]
     Active Substance: ESOMEPRAZOLE MAGNESIUM
     Indication: GASTROOESOPHAGEAL REFLUX DISEASE
     Route: 048
     Dates: start: 20090623
  48. SYNTHROID [Concomitant]
     Active Substance: LEVOTHYROXINE SODIUM
     Dates: start: 20050411
  49. CEPHALEXIN. [Concomitant]
     Active Substance: CEPHALEXIN
     Dates: start: 20091201
  50. HYDROCODONE-APAP [Concomitant]
     Active Substance: ACETAMINOPHEN\HYDROCODONE
     Dosage: 5-500
     Dates: start: 20091201
  51. CLONAZEPAM. [Concomitant]
     Active Substance: CLONAZEPAM
     Dates: start: 20091210
  52. PRAVACHOL [Concomitant]
     Active Substance: PRAVASTATIN SODIUM
  53. ALBUTEROL. [Concomitant]
     Active Substance: ALBUTEROL
  54. ALLEGRA [Concomitant]
     Active Substance: FEXOFENADINE HYDROCHLORIDE
  55. ZITHROMAX [Concomitant]
     Active Substance: AZITHROMYCIN DIHYDRATE
     Indication: INFECTION
  56. CYMBALTA [Concomitant]
     Active Substance: DULOXETINE HYDROCHLORIDE
     Dates: start: 20091220
  57. LUNESTA [Concomitant]
     Active Substance: ESZOPICLONE
     Dates: start: 20090622
  58. DIOVAN [Concomitant]
     Active Substance: VALSARTAN
     Route: 048
     Dates: start: 20090714
  59. VIAGRA [Concomitant]
     Active Substance: SILDENAFIL CITRATE
  60. METFORMIN [Concomitant]
     Active Substance: METFORMIN HYDROCHLORIDE
  61. FARXIGA [Concomitant]
     Active Substance: DAPAGLIFLOZIN PROPANEDIOL

REACTIONS (2)
  - Renal failure [Unknown]
  - Chronic kidney disease [Not Recovered/Not Resolved]

NARRATIVE: CASE EVENT DATE: 20160901
